FAERS Safety Report 15883057 (Version 5)
Quarter: 2019Q2

REPORT INFORMATION
  Report Type: Report from Study
  Country: US (occurrence: US)
  Receive Date: 20190129
  Receipt Date: 20190412
  Transmission Date: 20190711
  Serious: Yes (Disabling, Other)
  Sender: FDA-Public Use
  Company Number: US-BRISTOL-MYERS SQUIBB COMPANY-BMS-2018-118089

PATIENT
  Age: 64 Year
  Sex: Female
  Weight: 58.05 kg

DRUGS (6)
  1. IPILIMUMAB [Suspect]
     Active Substance: IPILIMUMAB
     Indication: SMALL INTESTINE CARCINOMA
     Dosage: UNK UNK, Q3WK
     Route: 065
     Dates: start: 20181114, end: 20190102
  2. PREDNISONE. [Concomitant]
     Active Substance: PREDNISONE
     Indication: PRODUCT USED FOR UNKNOWN INDICATION
     Route: 065
  3. LEVOTHYROXINE. [Concomitant]
     Active Substance: LEVOTHYROXINE
     Indication: PRODUCT USED FOR UNKNOWN INDICATION
     Route: 065
  4. NIVOLUMAB [Suspect]
     Active Substance: NIVOLUMAB
     Indication: SMALL INTESTINE CARCINOMA
     Dosage: UNK UNK, Q2WK
     Route: 042
     Dates: start: 20181114
  5. HYDROCORTISONE. [Concomitant]
     Active Substance: HYDROCORTISONE
     Indication: PRODUCT USED FOR UNKNOWN INDICATION
     Route: 065
  6. EFFEXOR [Concomitant]
     Active Substance: VENLAFAXINE HYDROCHLORIDE
     Indication: PRODUCT USED FOR UNKNOWN INDICATION
     Route: 065

REACTIONS (31)
  - Speech disorder [Unknown]
  - Respiratory disorder [Unknown]
  - Chest injury [Unknown]
  - Face injury [Unknown]
  - Nasopharyngitis [Unknown]
  - Pruritus [Unknown]
  - Fall [Unknown]
  - Product use in unapproved indication [Unknown]
  - Headache [Recovered/Resolved]
  - Constipation [Recovered/Resolved]
  - Seborrhoeic keratosis [Unknown]
  - Melanocytic naevus [Unknown]
  - Chest discomfort [Unknown]
  - Encephalitis [Unknown]
  - Dysphonia [Unknown]
  - Lymphadenopathy [Unknown]
  - Depression [Unknown]
  - Feeling of body temperature change [Unknown]
  - Sleep disorder [Unknown]
  - Influenza like illness [Recovered/Resolved]
  - Decreased appetite [Recovering/Resolving]
  - Muscular weakness [Unknown]
  - Joint injury [Unknown]
  - Rash [Unknown]
  - Skin disorder [Not Recovered/Not Resolved]
  - Pyrexia [Recovering/Resolving]
  - Fatigue [Recovering/Resolving]
  - Euphoric mood [Unknown]
  - Pain in extremity [Unknown]
  - Weight decreased [Recovering/Resolving]
  - Skin exfoliation [Unknown]

NARRATIVE: CASE EVENT DATE: 20190103
